FAERS Safety Report 5496611-5 (Version None)
Quarter: 2007Q4

REPORT INFORMATION
  Report Type: 
  Country: None (occurrence: None)
  Receive Date: 20071025
  Receipt Date: 20070706
  Transmission Date: 20080405
  Serious: No
  Sender: FDA-Public Use
  Company Number: A0659979A

PATIENT
  Age: 50 Year
  Sex: Female
  Weight: 62.7 kg

DRUGS (6)
  1. ADVAIR DISKUS 100/50 [Suspect]
     Indication: ASTHMA
     Dosage: 1PUFF TWICE PER DAY
     Route: 055
     Dates: start: 20070421, end: 20070423
  2. ORAL CONTRACEPTIVE [Concomitant]
  3. PREDNISONE [Concomitant]
     Indication: ASTHMA
     Dosage: 20MG TWICE PER DAY
     Route: 048
     Dates: start: 20070418
  4. CLINDAMYCIN HCL [Concomitant]
     Indication: PROPHYLAXIS
     Dosage: 900MG THREE TIMES PER DAY
     Route: 042
     Dates: start: 20070420, end: 20070421
  5. FAMOTIDINE [Concomitant]
     Dosage: 20MG TWICE PER DAY
     Route: 042
     Dates: start: 20070420, end: 20070421
  6. KETOROLAC [Concomitant]
     Indication: PAIN
     Dosage: 30MG FOUR TIMES PER DAY
     Route: 042
     Dates: start: 20070421, end: 20070421

REACTIONS (3)
  - DRUG INEFFECTIVE [None]
  - MEDICATION ERROR [None]
  - PHARMACEUTICAL PRODUCT COMPLAINT [None]
